FAERS Safety Report 10812044 (Version 1)
Quarter: 2015Q1

REPORT INFORMATION
  Report Type: Spontaneous
  Country: US (occurrence: None)
  Receive Date: 20150213
  Receipt Date: 20150213
  Transmission Date: 20150721
  Serious: Yes (Other)
  Sender: FDA-Public Use
  Company Number: None

PATIENT
  Age: 51 Year
  Sex: Female
  Weight: 61.24 kg

DRUGS (2)
  1. CORTISONE [Suspect]
     Active Substance: CORTISONE\HYDROCORTISONE
     Indication: PERIARTHRITIS
     Dosage: ONCE, HAD ONE SHOT
  2. HUMIRA [Suspect]
     Active Substance: ADALIMUMAB
     Indication: PSORIASIS
     Dosage: INJECTION, EVERY OTHER WEEK, INTO THE MUSCLE
     Dates: start: 20141117, end: 20150203

REACTIONS (2)
  - Joint injury [None]
  - Psoriasis [None]

NARRATIVE: CASE EVENT DATE: 20150116
